FAERS Safety Report 8619990-6 (Version None)
Quarter: 2012Q3

REPORT INFORMATION
  Report Type: 
  Country: None (occurrence: None)
  Receive Date: 20120817
  Receipt Date: 20120817
  Transmission Date: 20120928
  Serious: No
  Sender: FDA-Public Use
  Company Number: None

PATIENT
  Age: 44 Year
  Sex: Male
  Weight: 74.8435 kg

DRUGS (1)
  1. HYDROQUINONE 4%, PERRIGO [Suspect]
     Dosage: AT NIGHT, TOP
     Route: 061
     Dates: start: 20120801, end: 20120812

REACTIONS (1)
  - TINNITUS [None]
